FAERS Safety Report 9435717 (Version 1)
Quarter: 2013Q3

REPORT INFORMATION
  Report Type: Spontaneous
  Country: US (occurrence: US)
  Receive Date: 20130801
  Receipt Date: 20130801
  Transmission Date: 20140515
  Serious: No
  Sender: FDA-Public Use
  Company Number: US-B.I. PHARMACEUTICALS,INC./RIDGEFIELD-2013-BI-22936BP

PATIENT
  Age: 78 Year
  Sex: Male
  Weight: 128 kg

DRUGS (6)
  1. COMBIVENT [Suspect]
     Indication: CHRONIC OBSTRUCTIVE PULMONARY DISEASE
     Dosage: STRENGTH: 20 MCG / 100 MCG; DAILY DOSE: 160 MCG/800/MCG
     Route: 055
     Dates: start: 20130726
  2. CASODEX [Concomitant]
     Indication: PROSTATE CANCER
     Dosage: 50 MG
     Route: 048
  3. PLAQUENIL [Concomitant]
     Indication: SYSTEMIC LUPUS ERYTHEMATOSUS
     Dosage: 200 MG
     Route: 048
  4. POTASSIUM [Concomitant]
     Indication: SUPPLEMENTATION THERAPY
     Dosage: 3 ANZ
     Route: 048
  5. BUMEX [Concomitant]
     Indication: DIURETIC THERAPY
     Dosage: 3 MG
     Route: 048
  6. TERAZOSIN [Concomitant]
     Indication: PROSTATE CANCER
     Dosage: 5 MG
     Route: 048

REACTIONS (1)
  - Choking [Unknown]
